FAERS Safety Report 5914425-6 (Version None)
Quarter: 2008Q4

REPORT INFORMATION
  Report Type: 
  Country: None (occurrence: None)
  Receive Date: 20081009
  Receipt Date: 20080926
  Transmission Date: 20090506
  Serious: Yes (Hospitalization)
  Sender: FDA-Public Use
  Company Number: JP-MERCK-0809USA04971

PATIENT
  Age: 51 Year
  Sex: Female

DRUGS (4)
  1. DECADRON SRC [Suspect]
     Indication: PROPHYLAXIS OF NAUSEA AND VOMITING
     Route: 048
  2. GRANISETRON [Suspect]
     Indication: PROPHYLAXIS OF NAUSEA AND VOMITING
     Route: 048
  3. PROCHLORPERAZINE [Suspect]
     Indication: PROPHYLAXIS OF NAUSEA AND VOMITING
     Route: 065
  4. DOMPERIDONE [Suspect]
     Indication: PROPHYLAXIS OF NAUSEA AND VOMITING
     Route: 065

REACTIONS (3)
  - DRUG INEFFECTIVE [None]
  - NAUSEA [None]
  - VOMITING [None]
